FAERS Safety Report 6639009-6 (Version None)
Quarter: 2010Q1

REPORT INFORMATION
  Report Type: 
  Country: None (occurrence: None)
  Receive Date: 20100317
  Receipt Date: 20100311
  Transmission Date: 20100710
  Serious: Yes (Life-Threatening, Hospitalization)
  Sender: FDA-Public Use
  Company Number: ES-CELGENEUS-144-21880-10011638

PATIENT
  Sex: Female
  Weight: 64 kg

DRUGS (8)
  1. REVLIMID [Suspect]
     Indication: MULTIPLE MYELOMA
     Route: 048
     Dates: start: 20100112
  2. REVLIMID [Suspect]
     Route: 048
     Dates: start: 20100216
  3. DEXAMETHASONE [Suspect]
     Indication: MULTIPLE MYELOMA
     Route: 048
     Dates: start: 20100112
  4. CLEXANE [Concomitant]
     Indication: THROMBOSIS PROPHYLAXIS
     Route: 058
     Dates: start: 20100112, end: 20100118
  5. OMEPRAZOLE [Concomitant]
     Indication: GASTRITIS PROPHYLAXIS
     Route: 048
     Dates: start: 20100112
  6. SEPTRIM FORTE [Concomitant]
     Indication: PROPHYLAXIS
     Route: 048
     Dates: start: 20100112, end: 20100118
  7. ZOMETA [Concomitant]
     Indication: PROPHYLAXIS
     Route: 051
     Dates: start: 20100112, end: 20100113
  8. CALCIUM SANDOZ FORTE [Concomitant]
     Indication: PROPHYLAXIS
     Route: 048
     Dates: start: 20100112

REACTIONS (3)
  - ANAEMIA [None]
  - HYPOTENSION [None]
  - RENAL FAILURE [None]
